FAERS Safety Report 4691794-9 (Version None)
Quarter: 2005Q2

REPORT INFORMATION
  Report Type: 
  Country: None (occurrence: None)
  Receive Date: 20050615
  Receipt Date: 20050615
  Transmission Date: 20051028
  Serious: No
  Sender: FDA-Public Use
  Company Number: None

PATIENT
  Age: 56 Year
  Sex: Male
  Weight: 61.2356 kg

DRUGS (3)
  1. ZETIA [Suspect]
     Indication: BLOOD CHOLESTEROL INCREASED
     Dosage: 1 TABLET    DAY   ORAL
     Route: 048
     Dates: start: 20030404, end: 20050610
  2. NIASPAN [Concomitant]
  3. MYCARDIS HCT [Concomitant]

REACTIONS (7)
  - FAT TISSUE INCREASED [None]
  - HERNIA [None]
  - MUSCLE ATROPHY [None]
  - MUSCLE SPASMS [None]
  - MYALGIA [None]
  - PAIN IN EXTREMITY [None]
  - SHOULDER PAIN [None]
